FAERS Safety Report 13104526 (Version 1)
Quarter: 2017Q1

REPORT INFORMATION
  Report Type: Spontaneous
  Country: TH (occurrence: TH)
  Receive Date: 20170111
  Receipt Date: 20170111
  Transmission Date: 20170428
  Serious: Yes (Other)
  Sender: FDA-Public Use
  Company Number: TH-GLENMARK PHARMACEUTICALS-2017GMK025797

PATIENT

DRUGS (4)
  1. CIPROFLOXACIN. [Suspect]
     Active Substance: CIPROFLOXACIN
     Indication: PSEUDOMONAL SEPSIS
  2. LEVOFLOXACIN. [Suspect]
     Active Substance: LEVOFLOXACIN
     Indication: CELLULITIS
     Dosage: 750 MG, UNK
     Route: 048
  3. LEVOFLOXACIN. [Suspect]
     Active Substance: LEVOFLOXACIN
     Indication: PSEUDOMONAL SEPSIS
  4. CIPROFLOXACIN. [Suspect]
     Active Substance: CIPROFLOXACIN
     Indication: CELLULITIS
     Dosage: 400 MG, UNK
     Route: 042

REACTIONS (4)
  - Drug cross-reactivity [Unknown]
  - Drug reaction with eosinophilia and systemic symptoms [Unknown]
  - Vision blurred [Unknown]
  - Hypoaesthesia [Unknown]
